FAERS Safety Report 24459605 (Version 1)
Quarter: 2024Q4

REPORT INFORMATION
  Report Type: Report from Study
  Country: CA (occurrence: CA)
  Receive Date: 20241018
  Receipt Date: 20241018
  Transmission Date: 20250114
  Serious: No
  Sender: ROCHE
  Company Number: CA-ROCHE-3544507

PATIENT
  Age: 34 Year
  Sex: Female

DRUGS (5)
  1. RITUXAN [Suspect]
     Active Substance: RITUXIMAB
     Indication: Rheumatoid arthritis
     Dosage: DAY 1 , 15
     Route: 041
     Dates: start: 20200914, end: 20200914
  2. RITUXAN [Suspect]
     Active Substance: RITUXIMAB
     Dosage: SINGLE INFUSIONS
     Route: 041
     Dates: start: 20220412, end: 20230926
  3. CETIRIZINE [Concomitant]
     Active Substance: CETIRIZINE HYDROCHLORIDE
  4. PREDNISONE [Concomitant]
     Active Substance: PREDNISONE
  5. SALAGEN [Concomitant]
     Active Substance: PILOCARPINE HYDROCHLORIDE

REACTIONS (1)
  - COVID-19 [Unknown]

NARRATIVE: CASE EVENT DATE: 20220201
